FAERS Safety Report 8134517-3 (Version None)
Quarter: 2012Q1

REPORT INFORMATION
  Report Type: 
  Country: None (occurrence: None)
  Receive Date: 20120214
  Receipt Date: 20120213
  Transmission Date: 20120608
  Serious: Yes (Hospitalization, Other)
  Sender: FDA-Public Use
  Company Number: JP-PFIZER INC-2011295220

PATIENT
  Age: 81 Year
  Sex: Female

DRUGS (4)
  1. TARCEVA [Concomitant]
     Dosage: UNK
     Route: 048
  2. LYRICA [Suspect]
     Dosage: 300 MG/DAY
     Route: 048
     Dates: start: 20111108, end: 20111114
  3. CELECOXIB [Concomitant]
     Dosage: 200 MG/DAY
     Route: 048
  4. LYRICA [Suspect]
     Dosage: UNK
     Route: 048
     Dates: start: 20111013, end: 20111107

REACTIONS (1)
  - PNEUMONIA [None]
